FAERS Safety Report 8390028-1 (Version None)
Quarter: 2012Q2

REPORT INFORMATION
  Report Type: 
  Country: None (occurrence: None)
  Receive Date: 20120529
  Receipt Date: 20120514
  Transmission Date: 20120825
  Serious: Yes (Other)
  Sender: FDA-Public Use
  Company Number: US-JNJFOC-20120514143

PATIENT
  Sex: Male

DRUGS (10)
  1. FENTANYL-100 [Suspect]
     Indication: DRUG DIVERSION
     Dosage: NDC 0781 7144 55
     Route: 055
     Dates: start: 20080101, end: 20100101
  2. DURAGESIC-100 [Suspect]
     Indication: INTENTIONAL DRUG MISUSE
     Route: 055
     Dates: start: 20080101, end: 20100101
  3. FENTANYL-100 [Suspect]
     Indication: INTENTIONAL DRUG MISUSE
     Route: 055
     Dates: start: 20080101, end: 20100101
  4. FENTANYL-100 [Suspect]
     Indication: INTENTIONAL DRUG MISUSE
     Route: 055
     Dates: start: 20080101, end: 20100101
  5. FENTANYL-100 [Suspect]
     Indication: INTENTIONAL DRUG MISUSE
     Dosage: NDC 0781 7144 55
     Route: 055
     Dates: start: 20080101, end: 20100101
  6. FENTANYL-100 [Suspect]
     Dosage: NDC 0781 7113 55
     Route: 055
     Dates: start: 20080101, end: 20100101
  7. FENTANYL-100 [Suspect]
     Dosage: NDC 0781 7113 55
     Route: 055
     Dates: start: 20080101, end: 20100101
  8. DURAGESIC-100 [Suspect]
     Indication: DRUG DIVERSION
     Route: 055
     Dates: start: 20080101, end: 20100101
  9. FENTANYL-100 [Suspect]
     Indication: DRUG DIVERSION
     Route: 055
     Dates: start: 20080101, end: 20100101
  10. FENTANYL-100 [Suspect]
     Indication: DRUG DIVERSION
     Route: 055
     Dates: start: 20080101, end: 20100101

REACTIONS (3)
  - INTENTIONAL DRUG MISUSE [None]
  - DRUG DIVERSION [None]
  - WRONG TECHNIQUE IN DRUG USAGE PROCESS [None]
